FAERS Safety Report 9127090 (Version 1)
Quarter: 2013Q1

REPORT INFORMATION
  Report Type: Spontaneous
  Country: GB (occurrence: GB)
  Receive Date: 20130228
  Receipt Date: 20130228
  Transmission Date: 20140127
  Serious: Yes (Hospitalization)
  Sender: FDA-Public Use
  Company Number: GB-VERTEX PHARMACEUTICALS INC.-2013-002823

PATIENT
  Age: 51 Year
  Sex: 0

DRUGS (11)
  1. INCIVO [Suspect]
     Indication: HEPATITIS C
     Dosage: 750 MG, QD
     Route: 048
     Dates: start: 20121218
  2. PEGINTERFERON ALFA-2A [Suspect]
     Indication: HEPATITIS C
     Dosage: 180 ?G, QW
     Dates: start: 20121218
  3. RIBAVIRIN [Suspect]
     Indication: HEPATITIS C
     Dosage: 600 MG, BID
     Dates: start: 20121218
  4. CITALOPRAM [Concomitant]
     Dosage: 30 MG, QD
  5. DIHYDROCODEINE [Concomitant]
  6. FERROUS SULPHATE [Concomitant]
     Dosage: 200 MG, TID
  7. GABAPENTIN [Concomitant]
     Dosage: 900 MG, TID
  8. OMEPRAZOLE [Concomitant]
     Dosage: 20 MG, QD
  9. PROPRANOLOL [Concomitant]
     Dosage: 40 MG, BID
  10. THIAMINE [Concomitant]
     Dosage: 50 MG, QID
  11. VITAMIN B [Concomitant]
     Dosage: 2 DF, TID

REACTIONS (8)
  - Hepatic cirrhosis [None]
  - Cough [Unknown]
  - Decreased appetite [Unknown]
  - Fatigue [Unknown]
  - Lethargy [Unknown]
  - Thrombocytopenia [Not Recovered/Not Resolved]
  - Nausea [Unknown]
  - Vomiting [Unknown]
